FAERS Safety Report 9016454 (Version 1)
Quarter: 2013Q1

REPORT INFORMATION
  Report Type: Spontaneous
  Country: US (occurrence: US)
  Receive Date: 20130116
  Receipt Date: 20130116
  Transmission Date: 20140127
  Serious: Yes (Other)
  Sender: FDA-Public Use
  Company Number: US-009507513-1012USA00722

PATIENT
  Age: 9 Year
  Sex: Male
  Weight: 34.19 kg

DRUGS (3)
  1. SINGULAIR [Suspect]
     Indication: RHINITIS ALLERGIC
     Dosage: 1 DF, HS
     Route: 048
     Dates: start: 20100210, end: 20100310
  2. DIAMOX [Concomitant]
  3. CARBATROL [Concomitant]

REACTIONS (1)
  - Phobia [Unknown]
